FAERS Safety Report 12627663 (Version 1)
Quarter: 2016Q3

REPORT INFORMATION
  Report Type: Spontaneous
  Country: PK (occurrence: PK)
  Receive Date: 20160805
  Receipt Date: 20160805
  Transmission Date: 20161109
  Serious: Yes (Other)
  Sender: FDA-Public Use
  Company Number: PHHY2016PK105229

PATIENT
  Sex: Female

DRUGS (2)
  1. EBEDOCE [Suspect]
     Active Substance: DOCETAXEL
     Indication: BREAST CANCER
     Dosage: 75 MG/M2, UNK
     Route: 042
  2. LETARA [Concomitant]
     Indication: BREAST CANCER
     Route: 065

REACTIONS (4)
  - Necrosis [Recovered/Resolved]
  - Swelling [Recovered/Resolved]
  - Pruritus [Recovered/Resolved]
  - Infusion site infection [Recovered/Resolved]
